FAERS Safety Report 12847937 (Version 2)
Quarter: 2017Q1

REPORT INFORMATION
  Report Type: Report from Study
  Country: US (occurrence: US)
  Receive Date: 20161014
  Receipt Date: 20170223
  Transmission Date: 20170428
  Serious: Yes (Other)
  Sender: FDA-Public Use
  Company Number: US-BIOGEN-2016BI00303445

PATIENT
  Age: 27 Year
  Sex: Female

DRUGS (2)
  1. TECFIDERA [Suspect]
     Active Substance: DIMETHYL FUMARATE
     Indication: MULTIPLE SCLEROSIS
     Dosage: STARTING DOSE
     Route: 048
     Dates: start: 20140926, end: 20141003
  2. TECFIDERA [Suspect]
     Active Substance: DIMETHYL FUMARATE
     Dosage: MAINTENANCE DOSE
     Route: 048
     Dates: start: 20141004

REACTIONS (7)
  - Drug ineffective [Unknown]
  - Blindness transient [Not Recovered/Not Resolved]
  - Anxiety [Not Recovered/Not Resolved]
  - Sleep disorder [Not Recovered/Not Resolved]
  - Optic nerve disorder [Not Recovered/Not Resolved]
  - Vision blurred [Unknown]
  - Myopia [Unknown]

NARRATIVE: CASE EVENT DATE: 201409
